FAERS Safety Report 7419388-2 (Version None)
Quarter: 2011Q2

REPORT INFORMATION
  Report Type: 
  Country: None (occurrence: None)
  Receive Date: 20110415
  Receipt Date: 20110309
  Transmission Date: 20111010
  Serious: Yes (Other)
  Sender: FDA-Public Use
  Company Number: DE-BAYER-2011-021471

PATIENT
  Age: 69 Year
  Sex: Male

DRUGS (1)
  1. GADOVIST [Suspect]
     Indication: NUCLEAR MAGNETIC RESONANCE IMAGING
     Dosage: 13 ML, UNK
     Route: 042
     Dates: start: 20110115, end: 20110115

REACTIONS (1)
  - HAEMOLYTIC ANAEMIA [None]
